FAERS Safety Report 9234143 (Version 19)
Quarter: 2014Q4

REPORT INFORMATION
  Report Type: Spontaneous
  Country: US (occurrence: US)
  Receive Date: 20130416
  Receipt Date: 20141103
  Transmission Date: 20150529
  Serious: Yes (Other)
  Sender: FDA-Public Use
  Company Number: US-PFIZER INC-2013115399

PATIENT
  Age: 45 Year
  Sex: Male

DRUGS (14)
  1. LISINOPRIL. [Concomitant]
     Active Substance: LISINOPRIL
     Dosage: 20 MG, 2X/DAY
  2. SUTENT [Suspect]
     Active Substance: SUNITINIB MALATE
     Dosage: 37.5 MG, CYCLIC
     Dates: end: 20140531
  3. PRILOSEC [Concomitant]
     Active Substance: OMEPRAZOLE MAGNESIUM
     Dosage: UNK
  4. SUTENT [Suspect]
     Active Substance: SUNITINIB MALATE
     Indication: METASTATIC RENAL CELL CARCINOMA
     Dosage: 50 MG, 1X/DAY
     Dates: start: 200602, end: 20120505
  5. LORTAB [Concomitant]
     Active Substance: ACETAMINOPHEN\HYDROCODONE BITARTRATE
     Dosage: 1.5 DF, 1X/DAY
  6. LISINOPRIL. [Concomitant]
     Active Substance: LISINOPRIL
     Dosage: 40 MG, 2X/DAY
  7. IBUPROFEN. [Concomitant]
     Active Substance: IBUPROFEN
     Indication: PAIN
     Dosage: UNK MG, AS NEEDED
  8. AMLODIPINE [Concomitant]
     Active Substance: AMLODIPINE BESYLATE
     Indication: HYPERTENSION
     Dosage: 5 MG, 2X/DAY
  9. ZOFRAN [Concomitant]
     Active Substance: ONDANSETRON HYDROCHLORIDE
     Dosage: UNK, AS NEEDED (PRN)
  10. SUTENT [Suspect]
     Active Substance: SUNITINIB MALATE
     Dosage: 37.5 MG, CYCILC (DAILY, 28 DAYS ON AND 1 WEEK OFF)
     Dates: start: 201301, end: 20140521
  11. POTASSIUM [Concomitant]
     Active Substance: POTASSIUM
     Indication: MUSCLE SPASMS
     Dosage: 99 MG, AS NEEDED
  12. XANAX [Concomitant]
     Active Substance: ALPRAZOLAM
     Dosage: UNK
  13. SUTENT [Suspect]
     Active Substance: SUNITINIB MALATE
     Dosage: 50 MG, WITH 14 DAY BREAK
     Dates: start: 20130101
  14. AMLODIPINE [Concomitant]
     Active Substance: AMLODIPINE BESYLATE
     Dosage: 10 MG, 2X/DAY

REACTIONS (34)
  - Hair colour changes [Unknown]
  - Chills [Unknown]
  - Pain in extremity [Unknown]
  - Disease progression [Unknown]
  - Visual acuity reduced [Not Recovered/Not Resolved]
  - Blister [Recovering/Resolving]
  - Asthenia [Not Recovered/Not Resolved]
  - Disease progression [Unknown]
  - Muscle spasms [Recovered/Resolved]
  - Joint injury [Unknown]
  - Abdominal pain [Unknown]
  - Flatulence [Unknown]
  - Photopsia [Unknown]
  - Metastatic renal cell carcinoma [Unknown]
  - Retinal detachment [Unknown]
  - Joint swelling [Unknown]
  - Skin exfoliation [Unknown]
  - Tachycardia [Unknown]
  - Nausea [Unknown]
  - Upper respiratory tract infection [Unknown]
  - Myalgia [Not Recovered/Not Resolved]
  - Pain [Not Recovered/Not Resolved]
  - Skin lesion [Unknown]
  - Metastatic renal cell carcinoma [Unknown]
  - Chest pain [Unknown]
  - Hypertension [Not Recovered/Not Resolved]
  - Precancerous skin lesion [Unknown]
  - Diarrhoea [Not Recovered/Not Resolved]
  - Skin discolouration [Unknown]
  - Headache [Recovered/Resolved]
  - Amnesia [Unknown]
  - Abdominal distension [Unknown]
  - Fatigue [Not Recovered/Not Resolved]
  - Yellow skin [Unknown]

NARRATIVE: CASE EVENT DATE: 2006
